FAERS Safety Report 6429846-5 (Version None)
Quarter: 2009Q4

REPORT INFORMATION
  Report Type: 
  Country: None (occurrence: None)
  Receive Date: 20091103
  Receipt Date: 20091019
  Transmission Date: 20100525
  Serious: Yes (Hospitalization)
  Sender: FDA-Public Use
  Company Number: 2009002962

PATIENT
  Age: 64 Year
  Sex: Male

DRUGS (12)
  1. ERLOTINIB HYDROCHLORIDE [Suspect]
     Indication: NON-SMALL CELL LUNG CANCER
     Dosage: QD, ORAL
     Route: 048
     Dates: start: 20090202, end: 20091002
  2. ASPIRIN [Concomitant]
  3. BECLAZONE (BECLOMETASONE DIPROPIONATE) [Concomitant]
  4. VENTOLIN [Concomitant]
  5. OMEPRAZOLE [Concomitant]
  6. CITALOPRAM HYDROBROMIDE [Concomitant]
  7. SIMVASTATIN [Concomitant]
  8. DEXAMETHASONE TAB [Concomitant]
  9. IBUPROFEN [Concomitant]
  10. RAMIPRIL [Concomitant]
  11. POTASSIUM CHLORIDE [Concomitant]
  12. ENOXAPARIN SODIUM [Concomitant]

REACTIONS (6)
  - ELECTROCARDIOGRAM ABNORMAL [None]
  - FALL [None]
  - HEAD INJURY [None]
  - LOBAR PNEUMONIA [None]
  - MUSCULAR WEAKNESS [None]
  - MUSCULOSKELETAL CHEST PAIN [None]
